FAERS Safety Report 6198110-4 (Version None)
Quarter: 2009Q2

REPORT INFORMATION
  Report Type: 
  Country: None (occurrence: None)
  Receive Date: 20090514
  Receipt Date: 20080710
  Transmission Date: 20091009
  Serious: Yes (Other)
  Sender: FDA-Public Use
  Company Number: 50406

PATIENT
  Age: 77 Year
  Sex: Male
  Weight: 90.7194 kg

DRUGS (1)
  1. MITOMYCIN [Suspect]
     Indication: BLADDER CANCER
     Dosage: INTRAVESICALLY, WEEKLY FOR 6 WEEKS
     Route: 043
     Dates: start: 20080403, end: 20080410

REACTIONS (1)
  - RASH [None]
